FAERS Safety Report 15087933 (Version 1)
Quarter: 2018Q2

REPORT INFORMATION
  Report Type: Spontaneous
  Country: FR (occurrence: FR)
  Receive Date: 20180629
  Receipt Date: 20180629
  Transmission Date: 20180711
  Serious: Yes (Other)
  Sender: FDA-Public Use
  Company Number: FR-ACCORD-068904

PATIENT
  Age: 57 Year
  Sex: Male
  Weight: 73 kg

DRUGS (6)
  1. OXALIPLATIN ACCORD [Suspect]
     Active Substance: OXALIPLATIN
     Indication: OESOPHAGEAL ADENOCARCINOMA
     Route: 042
     Dates: start: 20180201, end: 20180201
  2. CALCIUM LEVOFOLINATE [Suspect]
     Active Substance: LEVOLEUCOVORIN CALCIUM
     Indication: PROPHYLAXIS
     Route: 042
     Dates: start: 20180201, end: 20180201
  3. ISOPTINE [Concomitant]
     Active Substance: VERAPAMIL HYDROCHLORIDE
     Indication: TACHYCARDIA
     Dosage: 1-0-1
     Route: 048
  4. PRAVASTATIN. [Concomitant]
     Active Substance: PRAVASTATIN
     Indication: DYSLIPIDAEMIA
     Dosage: 0-0-1
     Route: 048
  5. INEXIUM [Concomitant]
     Active Substance: ESOMEPRAZOLE
     Indication: HIATUS HERNIA
     Dosage: STRENGTH:40 MG
     Route: 048
  6. APRANAX [Concomitant]
     Active Substance: NAPROXEN
     Indication: PAIN
     Dosage: IF PAIN
     Route: 048

REACTIONS (4)
  - Off label use [Unknown]
  - Oedema mucosal [Recovered/Resolved]
  - Speech disorder [Recovered/Resolved]
  - Throat tightness [Recovered/Resolved]

NARRATIVE: CASE EVENT DATE: 20180201
